FAERS Safety Report 12492280 (Version 1)
Quarter: 2016Q2

REPORT INFORMATION
  Report Type: Spontaneous
  Country: US (occurrence: None)
  Receive Date: 20160622
  Receipt Date: 20160622
  Transmission Date: 20160815
  Serious: Yes (Life-Threatening)
  Sender: FDA-Public Use
  Company Number: None

PATIENT
  Age: 71 Year
  Sex: Male
  Weight: 74.4 kg

DRUGS (2)
  1. SOTALOL. [Suspect]
     Active Substance: SOTALOL
     Indication: ATRIAL FIBRILLATION
     Route: 048
     Dates: start: 20160603, end: 20160608
  2. SOTALOL. [Suspect]
     Active Substance: SOTALOL
     Indication: CARDIAC OPERATION
     Route: 048
     Dates: start: 20160603, end: 20160608

REACTIONS (1)
  - Electrocardiogram QT prolonged [None]

NARRATIVE: CASE EVENT DATE: 20160607
